FAERS Safety Report 7961258-5 (Version None)
Quarter: 2011Q4

REPORT INFORMATION
  Report Type: 
  Country: None (occurrence: None)
  Receive Date: 20111121
  Receipt Date: 20111006
  Transmission Date: 20120403
  Serious: No
  Sender: FDA-Public Use
  Company Number: 1000024541

PATIENT
  Age: 57 Year
  Sex: Female

DRUGS (3)
  1. VIIBRYD [Suspect]
     Indication: ANXIETY
     Dosage: 10 MG (10 MG, 1 IN 1 D),ORAL
     Route: 048
     Dates: start: 20110907, end: 20110913
  2. GABAPENTIN [Concomitant]
  3. VIIBRYD [Suspect]
     Indication: ANXIETY
     Dosage: 20 MG (20 MG, 1 IN 1 D), ORAL
     Route: 048
     Dates: start: 20110914, end: 20111003

REACTIONS (4)
  - SLEEP TERROR [None]
  - PAIN IN EXTREMITY [None]
  - OFF LABEL USE [None]
  - ABDOMINAL PAIN UPPER [None]
